FAERS Safety Report 8513954-9 (Version None)
Quarter: 2012Q3

REPORT INFORMATION
  Report Type: 
  Country: None (occurrence: None)
  Receive Date: 20120705
  Receipt Date: 20120627
  Transmission Date: 20120928
  Serious: Yes (Other)
  Sender: FDA-Public Use
  Company Number: ACO_30900_2012

PATIENT
  Age: 63 Year
  Sex: Female
  Weight: 68.9 kg

DRUGS (9)
  1. DIOVAN [Concomitant]
  2. HYDROCHLOROTHIAZIDE [Concomitant]
  3. RITALIN [Concomitant]
  4. AMPYRA [Suspect]
     Indication: GAIT DISTURBANCE
     Dosage: 10 MG, BID, ORAL
     Route: 048
     Dates: start: 20110701
  5. BACLOFEN [Concomitant]
  6. AMLODIPINE BESYLATE [Concomitant]
  7. CORTICOSTEROID NOS (CORTICOSTEROID NOS) [Concomitant]
  8. OXYBUTYNIN [Concomitant]
  9. RITUXIMAB (RITUXIMAB) [Concomitant]

REACTIONS (12)
  - PAIN IN EXTREMITY [None]
  - HEADACHE [None]
  - NAUSEA [None]
  - DECREASED APPETITE [None]
  - WEIGHT DECREASED [None]
  - TOOTHACHE [None]
  - HYPERTENSION [None]
  - PAIN [None]
  - OEDEMA PERIPHERAL [None]
  - EYE DISORDER [None]
  - BACK PAIN [None]
  - JOINT SWELLING [None]
